FAERS Safety Report 25347144 (Version 1)
Quarter: 2025Q2

REPORT INFORMATION
  Report Type: Spontaneous
  Country: CN (occurrence: CN)
  Receive Date: 20250522
  Receipt Date: 20250522
  Transmission Date: 20250716
  Serious: Yes (Hospitalization)
  Sender: PFIZER
  Company Number: CN-PFIZER INC-PV202500059973

PATIENT
  Age: 76 Year
  Sex: Male
  Weight: 56 kg

DRUGS (3)
  1. IRINOTECAN HYDROCHLORIDE [Suspect]
     Active Substance: IRINOTECAN HYDROCHLORIDE
     Indication: Colon cancer
     Dosage: 280 MG, EVERY 3 WEEKS
     Route: 041
     Dates: start: 20250419, end: 20250419
  2. TEGAFUR [Suspect]
     Active Substance: TEGAFUR
     Indication: Colon cancer
     Dosage: 60 MG, 2X/DAY
     Dates: start: 20250419, end: 20250419
  3. BEVACIZUMAB [Suspect]
     Active Substance: BEVACIZUMAB
     Indication: Colon cancer
     Dates: start: 20250419, end: 20250419

REACTIONS (7)
  - Blood pressure decreased [Recovered/Resolved]
  - Fatigue [Recovered/Resolved]
  - Nausea [Recovered/Resolved]
  - Vomiting [Recovered/Resolved]
  - Dysphagia [Recovered/Resolved]
  - Abdominal pain upper [Recovered/Resolved]
  - Dizziness [Recovered/Resolved]

NARRATIVE: CASE EVENT DATE: 20250501
